FAERS Safety Report 13004450 (Version 3)
Quarter: 2017Q1

REPORT INFORMATION
  Report Type: Spontaneous
  Country: AU (occurrence: AU)
  Receive Date: 20161207
  Receipt Date: 20170124
  Transmission Date: 20170428
  Serious: Yes (Hospitalization, Other)
  Sender: FDA-Public Use
  Company Number: AU-ALEXION PHARMACEUTICALS INC.-A201609392

PATIENT

DRUGS (2)
  1. CEFTRIAXONE. [Suspect]
     Active Substance: CEFTRIAXONE
     Indication: DEVICE RELATED INFECTION
     Route: 065
  2. SOLIRIS [Suspect]
     Active Substance: ECULIZUMAB
     Indication: HAEMOLYTIC URAEMIC SYNDROME
     Dosage: UNK
     Route: 042
     Dates: start: 20161111

REACTIONS (12)
  - Platelet count decreased [Unknown]
  - Blood creatinine increased [Unknown]
  - Systemic candida [Unknown]
  - Enterococcal infection [Unknown]
  - Device related infection [Recovering/Resolving]
  - Bacteraemia [Unknown]
  - Inappropriate schedule of drug administration [Unknown]
  - Blood lactate dehydrogenase increased [Unknown]
  - Pancreatic disorder [Unknown]
  - Bacterial sepsis [Unknown]
  - Abdominal pain [Unknown]
  - Anaemia [Unknown]
